FAERS Safety Report 7980876-1 (Version None)
Quarter: 2011Q4

REPORT INFORMATION
  Report Type: 
  Country: None (occurrence: None)
  Receive Date: 20111214
  Receipt Date: 20111201
  Transmission Date: 20120403
  Serious: Yes (Other)
  Sender: FDA-Public Use
  Company Number: IT-MYLANLABS-2011S1024756

PATIENT
  Age: 45 Year
  Sex: Male

DRUGS (1)
  1. ATENOLOL [Suspect]
     Indication: HYPERTENSION
     Route: 048
     Dates: start: 20111128, end: 20111129

REACTIONS (2)
  - ALTERED STATE OF CONSCIOUSNESS [None]
  - HYPOTENSION [None]
